FAERS Safety Report 5141832-4 (Version None)
Quarter: 2006Q4

REPORT INFORMATION
  Report Type: 
  Country: None (occurrence: None)
  Receive Date: 20061027
  Receipt Date: 20061013
  Transmission Date: 20070319
  Serious: Yes (Other)
  Sender: FDA-Public Use
  Company Number: 2006RR-02460

PATIENT
  Age: 74 Year
  Sex: Female

DRUGS (8)
  1. CEROXIM (CEFUROXIME AXETIL) [Suspect]
     Dosage: SEE IMAGE
     Route: 057
  2. PREDNISOLONE [Suspect]
     Indication: POST PROCEDURAL COMPLICATION
     Dosage: 1 %, X 4, ORAL
     Route: 048
  3. LIGNOCAINE (LIGNOCAINE), 2% [Suspect]
     Indication: ANAESTHESIA
     Dosage: INTRAOCULAR
     Route: 031
  4. BUPIVACAINE [Suspect]
     Indication: ANAESTHESIA
     Dosage: INTRAOCULAR
     Route: 031
  5. HYALURONIDASE [Suspect]
     Indication: ANAESTHESIA
     Dosage: INTRAOCULAR
     Route: 031
  6. POVIDONE IODINE [Suspect]
     Indication: PROPHYLAXIS
     Dosage: INTRAOCULAR
     Route: 031
  7. CHLORAMPHENICOL [Suspect]
     Indication: POST PROCEDURAL COMPLICATION
     Dosage: 0.5% X 4, OTHER
  8. PROXYMETACAINE (PROXYMETACAINE) [Suspect]

REACTIONS (6)
  - BODY TEMPERATURE DECREASED [None]
  - CATARACT OPERATION COMPLICATION [None]
  - EYE PAIN [None]
  - INTRAOCULAR PRESSURE INCREASED [None]
  - PAROPHTHALMIA [None]
  - VISUAL ACUITY REDUCED [None]
